FAERS Safety Report 4521046-9 (Version None)
Quarter: 2004Q4

REPORT INFORMATION
  Report Type: 
  Country: None (occurrence: None)
  Receive Date: 20041206
  Receipt Date: 20041123
  Transmission Date: 20050328
  Serious: Yes (Hospitalization)
  Sender: FDA-Public Use
  Company Number: F04200400306

PATIENT
  Age: 70 Year
  Sex: Female

DRUGS (7)
  1. ELOXATIN [Suspect]
     Indication: COLON CANCER
     Dosage: 150 MG OTHER (CUMULATIVE DOSE: 900 MG)
     Route: 041
     Dates: start: 20040823, end: 20040823
  2. FLUOROURACIL [Suspect]
     Indication: COLON CANCER
     Route: 041
     Dates: start: 20040801, end: 20040801
  3. (LEUCOVORIN) - SOLUTION [Suspect]
     Indication: COLON CANCER
     Route: 041
     Dates: start: 20040801, end: 20040801
  4. KEVATRIL (GRANISETRON HYDROCHLORIDE) [Concomitant]
  5. DEXAMETAHSON (DEXAMETHASONE) [Concomitant]
  6. NEXIUM [Concomitant]
  7. ACETYLCYSTEINE [Concomitant]

REACTIONS (6)
  - BURNING SENSATION [None]
  - EPILEPSY [None]
  - EXANTHEM [None]
  - INFUSION RELATED REACTION [None]
  - LOSS OF CONSCIOUSNESS [None]
  - URINARY INCONTINENCE [None]
